FAERS Safety Report 20318633 (Version 1)
Quarter: 2022Q1

REPORT INFORMATION
  Report Type: Report from Study
  Country: US (occurrence: US)
  Receive Date: 20220110
  Receipt Date: 20220110
  Transmission Date: 20220424
  Serious: Yes (Death)
  Sender: FDA-Public Use
  Company Number: US-EXELIXIS-XL18422047920

PATIENT
  Age: 66 Year
  Sex: Male

DRUGS (4)
  1. CABOZANTINIB [Suspect]
     Active Substance: CABOZANTINIB
     Indication: Renal cell carcinoma
     Dosage: 40 MG, QD
     Route: 048
     Dates: start: 20211007
  2. CABOZANTINIB [Suspect]
     Active Substance: CABOZANTINIB
     Indication: Metastases to bone
     Dosage: 60 MG, QD
     Route: 048
  3. RADIUM [Suspect]
     Active Substance: RADIUM
     Indication: Renal cell carcinoma
     Dosage: UNK
     Dates: start: 20211007
  4. RADIUM [Suspect]
     Active Substance: RADIUM
     Indication: Metastases to bone

REACTIONS (1)
  - Hypoxia [Fatal]

NARRATIVE: CASE EVENT DATE: 20211117
